FAERS Safety Report 9491168 (Version 1)
Quarter: 2013Q3

REPORT INFORMATION
  Report Type: Spontaneous
  Country: US (occurrence: US)
  Receive Date: 20130830
  Receipt Date: 20130830
  Transmission Date: 20140515
  Serious: No
  Sender: FDA-Public Use
  Company Number: US-009507513-1308USA010734

PATIENT
  Sex: Female

DRUGS (1)
  1. SAPHRIS [Suspect]
     Dosage: 5 MG, UNSPECIFIED FREQUENCY
     Route: 060
     Dates: start: 20130813, end: 20130820

REACTIONS (2)
  - Ageusia [Unknown]
  - Rash [Unknown]
